FAERS Safety Report 9372609 (Version 1)
Quarter: 2013Q2

REPORT INFORMATION
  Report Type: Report from Study
  Country: US (occurrence: US)
  Receive Date: 20130627
  Receipt Date: 20130627
  Transmission Date: 20140414
  Serious: Yes (Death)
  Sender: FDA-Public Use
  Company Number: US-MYLANLABS-2013S1002551

PATIENT
  Age: 67 Year
  Sex: Male

DRUGS (18)
  1. CLOZAPINE TABLETS [Suspect]
     Indication: SCHIZOPHRENIA, PARANOID TYPE
     Route: 048
  2. CLOZAPINE TABLETS [Suspect]
     Indication: SCHIZOPHRENIA, PARANOID TYPE
     Route: 048
  3. ASA [Concomitant]
  4. PLAVIX [Concomitant]
  5. LEVOTHYROXINE [Concomitant]
  6. MILK OF MAGNESIA [Concomitant]
  7. NEXIUM [Concomitant]
  8. SENNA [Concomitant]
  9. DULCOLAX (BISACODYL) [Concomitant]
  10. DEPAKOTE [Concomitant]
  11. FUROSEMIDE [Concomitant]
  12. LACTULOSE [Concomitant]
  13. METOPROLOL [Concomitant]
  14. POTASSIUM [Concomitant]
  15. DOCUSATE [Concomitant]
  16. COUMADIN [Concomitant]
  17. COUMADIN [Concomitant]
  18. MAGNESIUM CITRATE [Concomitant]

REACTIONS (1)
  - Respiratory failure [Fatal]
